FAERS Safety Report 6102264-5 (Version None)
Quarter: 2009Q1

REPORT INFORMATION
  Report Type: 
  Country: None (occurrence: None)
  Receive Date: 20090227
  Receipt Date: 20080211
  Transmission Date: 20090719
  Serious: Yes (Other)
  Sender: FDA-Public Use
  Company Number: 546493

PATIENT
  Age: 15 Year
  Sex: Male

DRUGS (3)
  1. ACCUTANE [Suspect]
     Indication: ACNE
  2. AMNESTEEM [Suspect]
     Indication: ACNE
  3. SOTRET (ISOTRETINOIN) 80 MG [Suspect]
     Indication: ACNE
     Dates: start: 20070808, end: 20080211

REACTIONS (3)
  - DEPRESSION [None]
  - EMOTIONAL DISORDER [None]
  - MOOD ALTERED [None]
